FAERS Safety Report 24532696 (Version 1)
Quarter: 2024Q4

REPORT INFORMATION
  Report Type: Spontaneous
  Country: IT (occurrence: IT)
  Receive Date: 20241022
  Receipt Date: 20241022
  Transmission Date: 20250114
  Serious: Yes (Hospitalization)
  Sender: RANBAXY
  Company Number: IT-MINISAL02-1000095

PATIENT
  Age: 89 Year
  Sex: Male

DRUGS (6)
  1. HYDROCHLOROTHIAZIDE\RAMIPRIL [Suspect]
     Active Substance: HYDROCHLOROTHIAZIDE\RAMIPRIL
     Indication: Hypertension
     Dosage: UNK
     Route: 065
  2. LASIX [Suspect]
     Active Substance: FUROSEMIDE
     Indication: Hypertension
     Dosage: UNK
     Route: 065
  3. ALFUZOSIN [Concomitant]
     Active Substance: ALFUZOSIN
     Indication: Benign prostatic hyperplasia
     Dosage: UNK
     Route: 065
  4. TICAGRELOR [Concomitant]
     Active Substance: TICAGRELOR
     Indication: Product used for unknown indication
     Dosage: UNK
     Route: 065
  5. PANTOPRAZOLE [Concomitant]
     Active Substance: PANTOPRAZOLE
     Indication: Product used for unknown indication
     Dosage: UNK
     Route: 065
  6. ATORVASTATIN [Concomitant]
     Active Substance: ATORVASTATIN
     Indication: Product used for unknown indication
     Dosage: UNK
     Route: 065

REACTIONS (3)
  - Hypokalaemia [Not Recovered/Not Resolved]
  - Asthenia [Not Recovered/Not Resolved]
  - Hyponatraemia [Not Recovered/Not Resolved]

NARRATIVE: CASE EVENT DATE: 20240822
